FAERS Safety Report 5718359-1 (Version None)
Quarter: 2008Q2

REPORT INFORMATION
  Report Type: 
  Country: None (occurrence: None)
  Receive Date: 20080425
  Receipt Date: 20071024
  Transmission Date: 20081010
  Serious: No
  Sender: FDA-Public Use
  Company Number: A0689542A

PATIENT
  Age: 30 Year
  Sex: Female

DRUGS (7)
  1. DEXEDRINE [Suspect]
     Indication: NARCOLEPSY
     Dosage: 60MG PER DAY
     Route: 048
  2. DEXEDRINE [Suspect]
     Route: 048
  3. ORTHO TRI-CYCLEN [Concomitant]
  4. CRESTOR [Concomitant]
  5. AMITRIPTYLINE HCL [Concomitant]
  6. FISH OIL [Concomitant]
  7. CO Q 10 [Concomitant]

REACTIONS (1)
  - METRORRHAGIA [None]
